FAERS Safety Report 15159785 (Version 1)
Quarter: 2018Q3

REPORT INFORMATION
  Report Type: Spontaneous
  Country: US (occurrence: US)
  Receive Date: 20180718
  Receipt Date: 20180718
  Transmission Date: 20181010
  Serious: Yes (Hospitalization, Other)
  Sender: FDA-Public Use
  Company Number: US-GLAXOSMITHKLINE-US2018125482

PATIENT
  Sex: Male

DRUGS (3)
  1. FENTANYL. [Concomitant]
     Active Substance: FENTANYL
  2. OXYCODONE [Concomitant]
     Active Substance: OXYCODONE
  3. VENTOLIN HFA [Suspect]
     Active Substance: ALBUTEROL SULFATE
     Indication: PRODUCT USED FOR UNKNOWN INDICATION
     Dosage: 2 PUFF(S), PRN
     Dates: start: 2013

REACTIONS (16)
  - Peripheral artery bypass [Recovered/Resolved]
  - Hypotonia [Recovering/Resolving]
  - Home care [Unknown]
  - Bone operation [Recovered/Resolved]
  - Rehabilitation therapy [Unknown]
  - Gangrene [Recovered/Resolved]
  - Sepsis [Recovered/Resolved]
  - Fall [Recovered/Resolved]
  - Dizziness [Recovered/Resolved]
  - Eye contusion [Recovered/Resolved]
  - Osteomyelitis [Recovered/Resolved]
  - Tremor [Recovering/Resolving]
  - Gait disturbance [Recovering/Resolving]
  - Toe amputation [Recovered/Resolved]
  - Confusional state [Recovered/Resolved]
  - Exophthalmos [Recovered/Resolved]

NARRATIVE: CASE EVENT DATE: 2017
